FAERS Safety Report 23295776 (Version 21)
Quarter: 2025Q4

REPORT INFORMATION
  Report Type: Report from Study
  Country: CA (occurrence: CA)
  Receive Date: 20231214
  Receipt Date: 20251202
  Transmission Date: 20260118
  Serious: Yes (Other)
  Sender: TAKEDA
  Company Number: CA-TAKEDA-2023TUS108124

PATIENT
  Age: 39 Year
  Sex: Male

DRUGS (21)
  1. TEDUGLUTIDE [Suspect]
     Active Substance: TEDUGLUTIDE
     Indication: Short-bowel syndrome
     Dosage: 3.1 MILLIGRAM, QD
     Dates: start: 20231030
  2. TEDUGLUTIDE [Suspect]
     Active Substance: TEDUGLUTIDE
     Dosage: 3.1 MILLIGRAM, QD
  3. TEDUGLUTIDE [Suspect]
     Active Substance: TEDUGLUTIDE
     Dosage: UNK UNK, QD
  4. TEDUGLUTIDE [Suspect]
     Active Substance: TEDUGLUTIDE
     Dosage: UNK UNK, QD
  5. TEDUGLUTIDE [Suspect]
     Active Substance: TEDUGLUTIDE
     Dosage: 3.1 MILLIGRAM, QD
  6. TEDUGLUTIDE [Suspect]
     Active Substance: TEDUGLUTIDE
     Dosage: 3.05 MILLIGRAM, QD
  7. TEDUGLUTIDE [Suspect]
     Active Substance: TEDUGLUTIDE
     Dosage: 3.05 MILLIGRAM, QD
  8. TEDUGLUTIDE [Suspect]
     Active Substance: TEDUGLUTIDE
     Dosage: 3.05 MILLIGRAM, QD
  9. TPN [Concomitant]
     Active Substance: AMINO ACIDS\DEXTROSE\ELECTROLYTES NOS\SOYBEAN OIL
     Indication: Product used for unknown indication
     Dosage: 2290 MILLILITER, QOD
     Dates: start: 202202
  10. TPN [Concomitant]
     Active Substance: AMINO ACIDS\DEXTROSE\ELECTROLYTES NOS\SOYBEAN OIL
     Dosage: 2090 MILLILITER, QOD
     Dates: start: 20231123
  11. TPN [Concomitant]
     Active Substance: AMINO ACIDS\DEXTROSE\ELECTROLYTES NOS\SOYBEAN OIL
     Dosage: 2090 MILLILITER, 3/WEEK
     Dates: start: 20240216
  12. TPN [Concomitant]
     Active Substance: AMINO ACIDS\DEXTROSE\ELECTROLYTES NOS\SOYBEAN OIL
     Dosage: 1870 MILLILITER, QOD
     Dates: start: 202402
  13. TPN [Concomitant]
     Active Substance: AMINO ACIDS\DEXTROSE\ELECTROLYTES NOS\SOYBEAN OIL
     Dosage: 1670 MILLILITER, QOD
     Dates: start: 20240306
  14. TPN [Concomitant]
     Active Substance: AMINO ACIDS\DEXTROSE\ELECTROLYTES NOS\SOYBEAN OIL
     Dosage: 1600 MILLILITER, 3/WEEK
     Dates: start: 20240430
  15. TPN [Concomitant]
     Active Substance: AMINO ACIDS\DEXTROSE\ELECTROLYTES NOS\SOYBEAN OIL
     Dosage: 2480 MILLILITER, 2/WEEK
  16. ESOMEPRAZOLE [Concomitant]
     Active Substance: ESOMEPRAZOLE
     Dosage: UNK
  17. LOPERAMIDE [Concomitant]
     Active Substance: LOPERAMIDE
     Dosage: UNK
  18. VITAMIN K [Concomitant]
     Active Substance: PHYTONADIONE
     Dosage: UNK
  19. B12 [Concomitant]
     Dosage: UNK
  20. CALCIUM [Concomitant]
     Active Substance: CALCIUM
     Dosage: UNK
  21. VITAMIN B12 [Concomitant]
     Active Substance: CYANOCOBALAMIN
     Dosage: UNK

REACTIONS (30)
  - Nephrolithiasis [Unknown]
  - Umbilical hernia [Recovering/Resolving]
  - Weight decreased [Not Recovered/Not Resolved]
  - Chromaturia [Recovering/Resolving]
  - Abnormal faeces [Unknown]
  - Fatigue [Recovering/Resolving]
  - Illness [Unknown]
  - Stress [Recovering/Resolving]
  - Intestinal transit time decreased [Unknown]
  - Pollakiuria [Unknown]
  - Faeces soft [Unknown]
  - Nocturia [Unknown]
  - Hernia [Unknown]
  - Family stress [Recovering/Resolving]
  - Procedural pain [Unknown]
  - Diarrhoea [Not Recovered/Not Resolved]
  - Frequent bowel movements [Unknown]
  - Eating disorder [Unknown]
  - Liquid product physical issue [Unknown]
  - Inappropriate schedule of product administration [Unknown]
  - Weight gain poor [Unknown]
  - Feeling hot [Unknown]
  - Anxiety [Unknown]
  - Malaise [Unknown]
  - Headache [Unknown]
  - Chills [Recovered/Resolved]
  - Pain [Recovered/Resolved]
  - Nasal congestion [Recovered/Resolved]
  - Decreased appetite [Recovering/Resolving]
  - Vomiting [Unknown]

NARRATIVE: CASE EVENT DATE: 20231104
